FAERS Safety Report 4501045-3 (Version None)
Quarter: 2004Q4

REPORT INFORMATION
  Report Type: 
  Country: None (occurrence: None)
  Receive Date: 20041110
  Receipt Date: 20041102
  Transmission Date: 20050328
  Serious: Yes (Death, Hospitalization)
  Sender: FDA-Public Use
  Company Number: 2004-BP-06094BP

PATIENT
  Age: 82 Year
  Sex: Female
  Weight: 49.4 kg

DRUGS (5)
  1. MOBIC [Suspect]
     Indication: OSTEOARTHRITIS
     Dosage: 7.5 MG (7.5 MG, 1 IN 1 D), PO
     Route: 048
     Dates: start: 20040628
  2. TENORETIC (TENORETIC) [Concomitant]
  3. RYTHMOL [Concomitant]
  4. TIAC [Concomitant]
  5. ASA (ACETYLSALICULIC ACID) [Concomitant]

REACTIONS (8)
  - BLOOD PRESSURE DECREASED [None]
  - DIZZINESS [None]
  - FALL [None]
  - GASTRIC ULCER HAEMORRHAGE [None]
  - HAEMATOCHEZIA [None]
  - HEAD INJURY [None]
  - INTESTINAL INFARCTION [None]
  - SKIN LACERATION [None]
